FAERS Safety Report 10053055 (Version 1)
Quarter: 2014Q2

REPORT INFORMATION
  Report Type: Spontaneous
  Country: GB (occurrence: GB)
  Receive Date: 20140402
  Receipt Date: 20140402
  Transmission Date: 20141212
  Serious: Yes (Other)
  Sender: FDA-Public Use
  Company Number: CHNY2014GB000947

PATIENT
  Sex: 0

DRUGS (8)
  1. SCOPODERM TTS [Suspect]
     Dates: start: 20140306
  2. ASPIRIN [Concomitant]
     Dates: start: 20131220
  3. CARBOMER [Concomitant]
     Dates: start: 20140305
  4. CONOTRANE                          /01805801/ [Concomitant]
     Dates: start: 20140305, end: 20140312
  5. HYDROXOCOBALAMIN [Concomitant]
     Dates: start: 20131220, end: 20140305
  6. LORAZEPAM [Concomitant]
     Dates: start: 20131220, end: 20140117
  7. SUDOCREM [Concomitant]
     Dates: start: 20140110
  8. NUTRITION SUPPLEMENTS [Concomitant]
     Dates: start: 20131220

REACTIONS (2)
  - Abnormal behaviour [Recovering/Resolving]
  - Logorrhoea [Unknown]
